FAERS Safety Report 6111002-1 (Version None)
Quarter: 2009Q1

REPORT INFORMATION
  Report Type: 
  Country: None (occurrence: None)
  Receive Date: 20090311
  Receipt Date: 20090303
  Transmission Date: 20090719
  Serious: Yes (Other)
  Sender: FDA-Public Use
  Company Number: JP-BAYER-200910646BYL

PATIENT
  Age: 76 Year
  Sex: Male

DRUGS (1)
  1. NEXAVAR [Suspect]
     Route: 048
     Dates: start: 20090209

REACTIONS (1)
  - ATRIAL FIBRILLATION [None]
